FAERS Safety Report 8787039 (Version 1)
Quarter: 2012Q4

REPORT INFORMATION
  Report Type: Report from Study
  Country: US (occurrence: US)
  Receive Date: 20120914
  Receipt Date: 20120914
  Transmission Date: 20130627
  Serious: Yes (Other)
  Sender: FDA-Public Use
  Company Number: US-ASTELLAS-2012US007153

PATIENT
  Sex: Female

DRUGS (1)
  1. ERLOTINIB TABLET [Suspect]
     Indication: LUNG CARCINOMA CELL TYPE UNSPECIFIED STAGE 0
     Dosage: 150 mg, UID/QD
     Route: 048
     Dates: start: 20120806

REACTIONS (8)
  - Eye disorder [Unknown]
  - Vision blurred [Unknown]
  - Blood glucose decreased [Unknown]
  - Vitreous floaters [Unknown]
  - Oral fungal infection [Unknown]
  - Rash [Unknown]
  - Tongue ulceration [Unknown]
  - Influenza [Recovered/Resolved]
